FAERS Safety Report 11173231 (Version 1)
Quarter: 2015Q2

REPORT INFORMATION
  Report Type: Spontaneous
  Country: US (occurrence: US)
  Receive Date: 20150608
  Receipt Date: 20150608
  Transmission Date: 20150821
  Serious: Yes (Hospitalization, Other)
  Sender: FDA-Public Use
  Company Number: US-GLAXOSMITHKLINE-A0898148A

PATIENT
  Age: 73 Year
  Sex: Female
  Weight: 67.7 kg

DRUGS (7)
  1. MELPHALAN [Suspect]
     Active Substance: MELPHALAN
     Indication: PLASMA CELL MYELOMA
     Dosage: 336 MG, SINGLE
     Route: 042
     Dates: start: 20101025, end: 20101025
  2. MELPHALAN [Suspect]
     Active Substance: MELPHALAN
     Dosage: 200 MG/M2, SINGLE
     Route: 042
     Dates: start: 20101025, end: 20101025
  3. AMBIEN [Concomitant]
     Active Substance: ZOLPIDEM TARTRATE
     Indication: INSOMNIA
     Route: 048
  4. LISINOPRIL. [Concomitant]
     Active Substance: LISINOPRIL
     Indication: HYPERTENSION
  5. TRIAMTERENE HCTZ [Concomitant]
     Active Substance: HYDROCHLOROTHIAZIDE\TRIAMTERENE
     Indication: HYPERTENSION
  6. ALBUTEROL. [Concomitant]
     Active Substance: ALBUTEROL
     Indication: WHEEZING
     Route: 055
  7. SYNTHROID [Concomitant]
     Active Substance: LEVOTHYROXINE SODIUM
     Indication: HYPOTHYROIDISM

REACTIONS (8)
  - Pyrexia [Unknown]
  - Dehydration [Unknown]
  - Febrile neutropenia [Recovering/Resolving]
  - Back pain [Unknown]
  - Spinal compression fracture [Unknown]
  - Nausea [Unknown]
  - Vomiting [Unknown]
  - Mucosal inflammation [Unknown]

NARRATIVE: CASE EVENT DATE: 20101030
